FAERS Safety Report 7391078-4 (Version None)
Quarter: 2011Q2

REPORT INFORMATION
  Report Type: 
  Country: None (occurrence: None)
  Receive Date: 20110404
  Receipt Date: 20110324
  Transmission Date: 20111010
  Serious: Yes (Other)
  Sender: FDA-Public Use
  Company Number: GB-JNJFOC-20110208379

PATIENT
  Age: 45 Year
  Sex: Female

DRUGS (2)
  1. DEPAKOTE [Concomitant]
     Indication: DRUG THERAPY
     Route: 065
  2. RISPERDAL CONSTA [Suspect]
     Indication: SCHIZOPHRENIA
     Route: 030

REACTIONS (2)
  - INJECTION SITE VESICLES [None]
  - INJECTION SITE PRURITUS [None]
